FAERS Safety Report 8444503-1 (Version None)
Quarter: 2012Q2

REPORT INFORMATION
  Report Type: 
  Country: None (occurrence: None)
  Receive Date: 20120611
  Receipt Date: 20120525
  Transmission Date: 20120825
  Serious: Yes (Hospitalization)
  Sender: FDA-Public Use
  Company Number: ACO_28511_2011

PATIENT
  Age: 45 Year
  Sex: Female

DRUGS (6)
  1. FAMPYRA (DALFAMPRIDINE) TABLET, 10MG [Suspect]
     Indication: MULTIPLE SCLEROSIS
     Dosage: 10 MG, BID, ORAL
     Route: 048
     Dates: start: 20110910, end: 20111126
  2. THYROID THERAPY [Concomitant]
  3. ANALGESICS [Concomitant]
  4. FLUOXETINE [Concomitant]
  5. BETAFERON [Concomitant]
  6. TOLPERISONE (TOLPERISONE) [Concomitant]

REACTIONS (9)
  - BLOOD CALCIUM DECREASED [None]
  - RETCHING [None]
  - GRAND MAL CONVULSION [None]
  - PYREXIA [None]
  - BACK PAIN [None]
  - GAIT DISTURBANCE [None]
  - NAUSEA [None]
  - HEADACHE [None]
  - DECREASED APPETITE [None]
